FAERS Safety Report 11913295 (Version 1)
Quarter: 2016Q1

REPORT INFORMATION
  Report Type: Spontaneous
  Country: US (occurrence: None)
  Receive Date: 20160112
  Receipt Date: 20160112
  Transmission Date: 20160526
  Serious: Yes (Other)
  Sender: FDA-Public Use
  Company Number: None

PATIENT
  Age: 37 Year
  Sex: Female
  Weight: 70.31 kg

DRUGS (8)
  1. MOTRIN [Concomitant]
     Active Substance: IBUPROFEN
  2. ESTRADIOL. [Concomitant]
     Active Substance: ESTRADIOL
  3. ALKASELTZER COLD AND FLU [Concomitant]
  4. MOTRIN [Concomitant]
     Active Substance: IBUPROFEN
  5. EFFEXOR XR [Concomitant]
     Active Substance: VENLAFAXINE HYDROCHLORIDE
  6. ABILIFY [Concomitant]
     Active Substance: ARIPIPRAZOLE
  7. VYVANSE [Concomitant]
     Active Substance: LISDEXAMFETAMINE DIMESYLATE
  8. LYRICA [Suspect]
     Active Substance: PREGABALIN
     Indication: FIBROMYALGIA
     Dosage: 2-3 MONTHS?10 MG ONE PILL
     Route: 048

REACTIONS (5)
  - Memory impairment [None]
  - Confusional state [None]
  - Cognitive disorder [None]
  - Impaired driving ability [None]
  - Speech disorder [None]

NARRATIVE: CASE EVENT DATE: 20141216
